FAERS Safety Report 14038901 (Version 5)
Quarter: 2018Q2

REPORT INFORMATION
  Report Type: Report from Study
  Country: US (occurrence: US)
  Receive Date: 20171004
  Receipt Date: 20180412
  Transmission Date: 20180711
  Serious: Yes (Other)
  Sender: FDA-Public Use
  Company Number: US-AMGEN-USASL2017147814

PATIENT
  Age: 70 Year
  Sex: Female

DRUGS (4)
  1. REPATHA [Suspect]
     Active Substance: EVOLOCUMAB
     Dosage: 140 MG, QMO
     Route: 065
  2. REPATHA [Suspect]
     Active Substance: EVOLOCUMAB
     Indication: BLOOD CHOLESTEROL ABNORMAL
     Dosage: 140 MG, Q2WK
     Route: 065
  3. REPATHA [Suspect]
     Active Substance: EVOLOCUMAB
     Dosage: 420 MG, QMO
     Route: 065
  4. REPATHA [Suspect]
     Active Substance: EVOLOCUMAB
     Indication: BLOOD CHOLESTEROL INCREASED
     Dosage: 420 MG, QMO
     Route: 065
     Dates: start: 20160801

REACTIONS (12)
  - Asthenia [Recovering/Resolving]
  - Abdominal pain upper [Unknown]
  - Dizziness [Unknown]
  - Myalgia [Recovering/Resolving]
  - Gait inability [Recovering/Resolving]
  - Headache [Unknown]
  - Cough [Recovering/Resolving]
  - Inappropriate schedule of drug administration [Unknown]
  - Fall [Unknown]
  - Sneezing [Recovering/Resolving]
  - Malaise [Unknown]
  - Nasopharyngitis [Unknown]
